FAERS Safety Report 9015738 (Version 1)
Quarter: 2013Q1

REPORT INFORMATION
  Report Type: Spontaneous
  Country: GB (occurrence: None)
  Receive Date: 20130103
  Receipt Date: 20130103
  Transmission Date: 20140127
  Serious: Yes (Other)
  Sender: FDA-Public Use
  Company Number: AUR-APL-2012-05571

PATIENT
  Age: 53 Year
  Sex: Male
  Weight: 93.4 kg

DRUGS (3)
  1. AMOXICILLIN (AMOXICILLIN) [Suspect]
     Indication: PRODUCT USED FOR UNKNOWN INDICATION
     Dates: start: 20121211
  2. CLARITHROMYCIN (CLARITHROMYCIN) [Concomitant]
  3. PREDNISOLONE (PREDNISOLONE) [Concomitant]

REACTIONS (4)
  - Ocular hyperaemia [None]
  - Eye pain [None]
  - Lacrimation increased [None]
  - Photophobia [None]
